FAERS Safety Report 5422526-4 (Version None)
Quarter: 2007Q3

REPORT INFORMATION
  Report Type: 
  Country: None (occurrence: None)
  Receive Date: 20070822
  Receipt Date: 20070810
  Transmission Date: 20080115
  Serious: Yes (Death)
  Sender: FDA-Public Use
  Company Number: US-SANOFI-SYNTHELABO-A03200705036

PATIENT
  Sex: Male
  Weight: 69.39 kg

DRUGS (4)
  1. PLAVIX [Suspect]
     Indication: CEREBROVASCULAR ACCIDENT
     Route: 048
     Dates: start: 20050101, end: 20070101
  2. COUMADIN [Concomitant]
     Route: 065
     Dates: start: 20040101
  3. COUMADIN [Concomitant]
     Route: 065
     Dates: start: 20040101
  4. COUMADIN [Concomitant]
     Route: 065
     Dates: start: 20070728, end: 20070101

REACTIONS (2)
  - ACUTE MYOCARDIAL INFARCTION [None]
  - INTERNATIONAL NORMALISED RATIO INCREASED [None]
